FAERS Safety Report 19246677 (Version 6)
Quarter: 2022Q1

REPORT INFORMATION
  Report Type: Report from Study
  Country: FR (occurrence: FR)
  Receive Date: 20210512
  Receipt Date: 20220304
  Transmission Date: 20220424
  Serious: Yes (Hospitalization)
  Sender: FDA-Public Use
  Company Number: FR-CC-90009-AML-002-4011001-20210505-0005SG

PATIENT
  Age: 73 Year
  Sex: Male
  Weight: 80 kg

DRUGS (7)
  1. INVESTIGATIONAL PRODUCT [Suspect]
     Active Substance: INVESTIGATIONAL PRODUCT
     Indication: Acute myeloid leukaemia
     Dosage: 3 MG X 1 X 1 DAYS
     Route: 042
     Dates: start: 20210222, end: 20210222
  2. INVESTIGATIONAL PRODUCT [Suspect]
     Active Substance: INVESTIGATIONAL PRODUCT
     Dosage: 3 MG X 1 X 1 DAYS
     Route: 042
     Dates: start: 20210322, end: 20210322
  3. AZACITIDINE [Suspect]
     Active Substance: AZACITIDINE
     Indication: Acute myeloid leukaemia
     Dosage: 149 MG X 1 X 1 DAYS
     Route: 058
     Dates: start: 20210219, end: 20210219
  4. AZACITIDINE [Suspect]
     Active Substance: AZACITIDINE
     Dosage: 145 MG X 1 X 1 DAYS
     Route: 058
     Dates: start: 20210322, end: 20210322
  5. VENETOCLAX [Suspect]
     Active Substance: VENETOCLAX
     Indication: Acute myeloid leukaemia
     Dosage: 100 MG X 1 X 1 DAYS
     Route: 048
     Dates: start: 20210219, end: 20210219
  6. VENETOCLAX [Suspect]
     Active Substance: VENETOCLAX
     Dosage: 50 MG X 1 X 1 DAYS
     Route: 048
     Dates: start: 20210322, end: 20210324
  7. LEUCOVORIN CALCIUM [Concomitant]
     Active Substance: LEUCOVORIN CALCIUM
     Indication: Prophylaxis
     Dosage: 5 MG X 1 X 1 WEEKS
     Route: 048
     Dates: start: 20210306

REACTIONS (2)
  - Bone marrow failure [Recovered/Resolved]
  - General physical health deterioration [Recovered/Resolved with Sequelae]

NARRATIVE: CASE EVENT DATE: 20210413
